FAERS Safety Report 25395362 (Version 2)
Quarter: 2025Q2

REPORT INFORMATION
  Report Type: Spontaneous
  Country: IN (occurrence: IN)
  Receive Date: 20250604
  Receipt Date: 20250611
  Transmission Date: 20250717
  Serious: Yes (Other)
  Sender: PFIZER
  Company Number: IN-PFIZER INC-2021510578

PATIENT
  Age: 55 Year
  Sex: Male
  Weight: 56 kg

DRUGS (5)
  1. LORLATINIB [Suspect]
     Active Substance: LORLATINIB
     Dosage: 100 MG, DAILY
     Route: 048
     Dates: start: 20210424
  2. LORLATINIB [Suspect]
     Active Substance: LORLATINIB
     Dates: start: 20210503
  3. LORLATINIB [Suspect]
     Active Substance: LORLATINIB
     Dosage: 100 MG, DAILY
     Route: 048
     Dates: start: 20210506
  4. LORLATINIB [Suspect]
     Active Substance: LORLATINIB
  5. LORLATINIB [Suspect]
     Active Substance: LORLATINIB
     Dosage: 100 MG PER DAY (OD) WITH OR WITHOUT FOOD
     Route: 048

REACTIONS (10)
  - Pancreatitis [Unknown]
  - Dysphonia [Recovering/Resolving]
  - Blood creatine abnormal [Unknown]
  - Lipids abnormal [Recovering/Resolving]
  - Weight decreased [Unknown]
  - Blood cholesterol increased [Unknown]
  - Blood triglycerides increased [Unknown]
  - Weight increased [Recovering/Resolving]
  - Oedema [Unknown]
  - Off label use [Unknown]

NARRATIVE: CASE EVENT DATE: 20221214
